FAERS Safety Report 5198080-1 (Version None)
Quarter: 2006Q4

REPORT INFORMATION
  Report Type: 
  Country: None (occurrence: None)
  Receive Date: 20061228
  Receipt Date: 20061215
  Transmission Date: 20070319
  Serious: Yes (Death)
  Sender: FDA-Public Use
  Company Number: 2006S1011571

PATIENT
  Age: 54 Year
  Sex: Female

DRUGS (1)
  1. FENTANYL TRANSDERMAL SYSTEM [Suspect]
     Indication: CANCER PAIN
     Dosage: TDER
     Dates: end: 20050930

REACTIONS (2)
  - FEELING COLD [None]
  - INCORRECT DRUG ADMINISTRATION RATE [None]
